FAERS Safety Report 4576399-2 (Version None)
Quarter: 2005Q1

REPORT INFORMATION
  Report Type: 
  Country: None (occurrence: None)
  Receive Date: 20050207
  Receipt Date: 20050126
  Transmission Date: 20050727
  Serious: Yes (Hospitalization)
  Sender: FDA-Public Use
  Company Number: 2004102982

PATIENT
  Age: 57 Year
  Sex: Female

DRUGS (1)
  1. LIPITOR [Suspect]
     Indication: ILL-DEFINED DISORDER
     Dosage: ORAL
     Route: 048
     Dates: start: 20031008

REACTIONS (3)
  - BLOOD GLUCOSE INCREASED [None]
  - GLUCOSE TOLERANCE DECREASED [None]
  - GLYCOSYLATED HAEMOGLOBIN INCREASED [None]
